FAERS Safety Report 14966405 (Version 1)
Quarter: 2018Q2

REPORT INFORMATION
  Report Type: Spontaneous
  Country: FR (occurrence: FR)
  Receive Date: 20180604
  Receipt Date: 20180604
  Transmission Date: 20180711
  Serious: Yes (Hospitalization)
  Sender: FDA-Public Use
  Company Number: FR-TEVA-2018-FR-900425

PATIENT
  Age: 38 Year
  Sex: Male

DRUGS (5)
  1. DICLOFENAC [Suspect]
     Active Substance: DICLOFENAC
     Indication: POISONING DELIBERATE
     Dosage: 10 TIMES THE PLUG
     Route: 048
     Dates: start: 20170321, end: 20170321
  2. CODEINE [Suspect]
     Active Substance: CODEINE
     Indication: POISONING DELIBERATE
     Route: 048
     Dates: start: 20170321, end: 20170321
  3. PARACETAMOL [Suspect]
     Active Substance: ACETAMINOPHEN
     Indication: POISONING DELIBERATE
     Route: 048
     Dates: start: 20170321, end: 20170321
  4. KETOPROFEN. [Suspect]
     Active Substance: KETOPROFEN
     Indication: POISONING DELIBERATE
     Route: 048
     Dates: start: 20170321, end: 20170321
  5. IBUPROFEN. [Suspect]
     Active Substance: IBUPROFEN
     Indication: POISONING DELIBERATE
     Route: 048
     Dates: start: 20170321, end: 20170321

REACTIONS (4)
  - Coma scale abnormal [Recovered/Resolved]
  - Poisoning deliberate [Recovered/Resolved]
  - Coma [Recovered/Resolved]
  - Vomiting [Recovered/Resolved]

NARRATIVE: CASE EVENT DATE: 20170321
